FAERS Safety Report 9065499 (Version 1)
Quarter: 2013Q1

REPORT INFORMATION
  Report Type: Spontaneous
  Country: US (occurrence: US)
  Receive Date: 20130206
  Receipt Date: 20130206
  Transmission Date: 20140127
  Serious: No
  Sender: FDA-Public Use
  Company Number: US-TEVA-384011USA

PATIENT
  Age: 19 None
  Sex: Female
  Weight: 59.47 kg

DRUGS (1)
  1. PLAN B ONE-STEP [Suspect]
     Indication: POST COITAL CONTRACEPTION
     Dosage: 1.5 MILLIGRAM DAILY;
     Route: 048
     Dates: start: 20130105, end: 20130105

REACTIONS (2)
  - Weight decreased [Unknown]
  - Metrorrhagia [Recovered/Resolved]
